FAERS Safety Report 17559338 (Version 1)
Quarter: 2020Q1

REPORT INFORMATION
  Report Type: Spontaneous
  Country: US (occurrence: US)
  Receive Date: 20200319
  Receipt Date: 20200319
  Transmission Date: 20200409
  Serious: Yes (Other)
  Sender: FDA-Public Use
  Company Number: US-ABBVIE-20K-163-3321051-00

PATIENT
  Age: 30 Year
  Sex: Female

DRUGS (2)
  1. SYNTHROID [Suspect]
     Active Substance: LEVOTHYROXINE SODIUM
     Indication: AUTOIMMUNE THYROIDITIS
     Route: 048
     Dates: start: 201801
  2. UNISOM SLEEPTABS [Concomitant]
     Active Substance: DOXYLAMINE SUCCINATE
     Indication: INSOMNIA

REACTIONS (4)
  - Maternal exposure during pregnancy [Unknown]
  - Live birth [Unknown]
  - Mastitis [Not Recovered/Not Resolved]
  - Thyrotoxic crisis [Recovered/Resolved]

NARRATIVE: CASE EVENT DATE: 2018
